FAERS Safety Report 7427557-0 (Version None)
Quarter: 2011Q2

REPORT INFORMATION
  Report Type: 
  Country: None (occurrence: None)
  Receive Date: 20110420
  Receipt Date: 20110408
  Transmission Date: 20111010
  Serious: Yes (Hospitalization, Other)
  Sender: FDA-Public Use
  Company Number: US-ELI_LILLY_AND_COMPANY-US201007004449

PATIENT
  Sex: Female

DRUGS (5)
  1. SOMA [Concomitant]
     Dosage: 350 MG, UNK
  2. LUNESTA [Concomitant]
     Dosage: UNK, OTHER
  3. FORTEO [Suspect]
     Indication: OSTEOPOROSIS
     Dosage: 20 UG, QD
     Dates: end: 20101001
  4. CLONIDINE [Concomitant]
  5. LORTAB [Concomitant]
     Dosage: UNK, OTHER

REACTIONS (11)
  - IMPLANTABLE DEFIBRILLATOR INSERTION [None]
  - POST PROCEDURAL COMPLICATION [None]
  - BLOOD POTASSIUM INCREASED [None]
  - BLOOD CHOLESTEROL INCREASED [None]
  - MEMORY IMPAIRMENT [None]
  - BLOOD PRESSURE DECREASED [None]
  - HEADACHE [None]
  - MUSCULOSKELETAL DISORDER [None]
  - TRANSFUSION [None]
  - CARDIAC DISORDER [None]
  - TRANSIENT ISCHAEMIC ATTACK [None]
